FAERS Safety Report 16964703 (Version 1)
Quarter: 2019Q4

REPORT INFORMATION
  Report Type: Report from Study
  Country: CA (occurrence: CA)
  Receive Date: 20191028
  Receipt Date: 20191028
  Transmission Date: 20200122
  Serious: Yes (Other)
  Sender: FDA-Public Use
  Company Number: CA-ORION CORPORATION ORION PHARMA-TREX2019-4698

PATIENT
  Sex: Male

DRUGS (5)
  1. METHOTREXATE (TRADE NAME UNKNOWN) [Suspect]
     Active Substance: METHOTREXATE
     Indication: PRODUCT USED FOR UNKNOWN INDICATION
     Route: 065
  2. COSENTYX [Suspect]
     Active Substance: SECUKINUMAB
     Indication: PSORIATIC ARTHROPATHY
     Route: 058
  3. ENBREL [Concomitant]
     Active Substance: ETANERCEPT
     Route: 065
  4. REMICADE [Concomitant]
     Active Substance: INFLIXIMAB
     Route: 065
  5. HUMIRA [Concomitant]
     Active Substance: ADALIMUMAB
     Route: 065

REACTIONS (3)
  - Treatment failure [Unknown]
  - Psoriatic arthropathy [Unknown]
  - Inflammation [Unknown]
